FAERS Safety Report 6796091-3 (Version None)
Quarter: 2010Q2

REPORT INFORMATION
  Report Type: 
  Country: None (occurrence: None)
  Receive Date: 20100625
  Receipt Date: 20100618
  Transmission Date: 20101027
  Serious: Yes (Hospitalization)
  Sender: FDA-Public Use
  Company Number: DE-JNJFOC-20100604376

PATIENT
  Age: 30 Year
  Sex: Male
  Weight: 66.5 kg

DRUGS (21)
  1. HALDOL [Suspect]
     Indication: DRUG USE FOR UNKNOWN INDICATION
     Route: 048
     Dates: start: 20061129
  2. HALDOL [Suspect]
     Route: 048
     Dates: start: 20061129
  3. HALDOL [Suspect]
     Route: 048
     Dates: start: 20061129
  4. HALDOL [Suspect]
     Route: 048
     Dates: start: 20061129
  5. HALDOL [Suspect]
     Route: 048
     Dates: start: 20061129
  6. LEVOMEPROMAZIN [Suspect]
     Indication: DRUG USE FOR UNKNOWN INDICATION
     Route: 048
     Dates: start: 20061124
  7. LEVOMEPROMAZIN [Suspect]
     Route: 048
     Dates: start: 20061124
  8. LEVOMEPROMAZIN [Suspect]
     Route: 048
     Dates: start: 20061124
  9. LEVOMEPROMAZIN [Suspect]
     Route: 048
     Dates: start: 20061124
  10. LEVOMEPROMAZIN [Suspect]
     Route: 048
     Dates: start: 20061124
  11. LEVOMEPROMAZIN [Suspect]
     Route: 048
     Dates: start: 20061124
  12. ERGENYL [Suspect]
     Indication: DRUG USE FOR UNKNOWN INDICATION
     Route: 048
     Dates: start: 20070417
  13. ERGENYL [Suspect]
     Route: 048
     Dates: start: 20070417
  14. ERGENYL [Suspect]
     Route: 048
     Dates: start: 20070417
  15. ERGENYL [Suspect]
     Route: 048
     Dates: start: 20070417
  16. ERGENYL [Suspect]
     Route: 048
     Dates: start: 20070417
  17. ERGENYL [Suspect]
     Route: 048
     Dates: start: 20070417
  18. BUSCOPAN [Suspect]
     Indication: DRUG USE FOR UNKNOWN INDICATION
     Route: 048
     Dates: start: 20070412, end: 20070422
  19. LEPONEX [Suspect]
     Indication: DRUG USE FOR UNKNOWN INDICATION
     Route: 048
     Dates: start: 20070109
  20. LEPONEX [Suspect]
     Route: 048
     Dates: start: 20070109
  21. LEPONEX [Suspect]
     Dosage: 12.5 MG TO 600 MG
     Route: 048
     Dates: start: 20070109

REACTIONS (8)
  - APHASIA [None]
  - ASTHENIA [None]
  - DYSPHEMIA [None]
  - GAIT DISTURBANCE [None]
  - MIOSIS [None]
  - SALIVARY HYPERSECRETION [None]
  - SEDATION [None]
  - VOMITING [None]
